FAERS Safety Report 16863672 (Version 2)
Quarter: 2020Q1

REPORT INFORMATION
  Report Type: Report from Study
  Country: US (occurrence: US)
  Receive Date: 20190927
  Receipt Date: 20200324
  Transmission Date: 20200409
  Serious: Yes (Life-Threatening)
  Sender: FDA-Public Use
  Company Number: US-GLAXOSMITHKLINE-2018-TSO2066-US

PATIENT
  Age: 52 Year
  Sex: Female
  Weight: 67 kg

DRUGS (6)
  1. NIRAPARIB [Suspect]
     Active Substance: NIRAPARIB
     Indication: FALLOPIAN TUBE CANCER
     Dosage: 200 MG, QD, PM
     Route: 048
     Dates: start: 20181106, end: 20181128
  2. NIRAPARIB [Suspect]
     Active Substance: NIRAPARIB
     Dosage: 100 MG, QD (HS) TAKEN WITHOUT FOOD/TAKEN DURING THE DAY
     Route: 048
     Dates: start: 20190308
  3. NIRAPARIB [Suspect]
     Active Substance: NIRAPARIB
     Dosage: 100 UNK
  4. NIRAPARIB [Suspect]
     Active Substance: NIRAPARIB
     Dosage: 100 MG, QD (HS) TAKEN WITHOUT FOOD
     Route: 048
     Dates: start: 20181229, end: 201903
  5. DULOXETINE. [Concomitant]
     Active Substance: DULOXETINE
     Indication: NEUROPATHY PERIPHERAL
     Dosage: 20 MG, QD
  6. DULOXETINE. [Concomitant]
     Active Substance: DULOXETINE
     Dosage: 60 MG, QD

REACTIONS (7)
  - Contusion [Recovered/Resolved]
  - Psychomotor hyperactivity [Recovering/Resolving]
  - Red blood cell count decreased [Recovered/Resolved]
  - Blood bilirubin increased [Unknown]
  - Platelet count decreased [Recovering/Resolving]
  - Blood calcium increased [Recovered/Resolved]
  - White blood cell count decreased [Recovered/Resolved]

NARRATIVE: CASE EVENT DATE: 201811
